FAERS Safety Report 9724017 (Version 2)
Quarter: 2014Q1

REPORT INFORMATION
  Report Type: Spontaneous
  Country: US (occurrence: US)
  Receive Date: 20131202
  Receipt Date: 20140102
  Transmission Date: 20141002
  Serious: No
  Sender: FDA-Public Use
  Company Number: US-AMGEN-USASP2013077726

PATIENT
  Age: 60 Year
  Sex: Male
  Weight: 53.52 kg

DRUGS (5)
  1. ENBREL [Suspect]
     Indication: RHEUMATOID ARTHRITIS
     Dosage: 50 MG, QWK
     Route: 058
     Dates: start: 201305
  2. ISONIAZIDE [Concomitant]
     Indication: LATENT TUBERCULOSIS
     Dosage: 300 MG, QD
     Route: 048
  3. VITAMIN B6 [Concomitant]
     Dosage: 100 MG, QD
  4. MELOXICAM [Concomitant]
     Indication: PAIN
     Dosage: 7.5 MG, BID
     Route: 048
  5. VIREAD [Concomitant]
     Indication: VIRAL HEPATITIS CARRIER
     Dosage: 300 MG, QD
     Route: 048

REACTIONS (2)
  - Intervertebral disc protrusion [Not Recovered/Not Resolved]
  - Back pain [Not Recovered/Not Resolved]
